FAERS Safety Report 6107179-4 (Version None)
Quarter: 2009Q1

REPORT INFORMATION
  Report Type: 
  Country: None (occurrence: None)
  Receive Date: 20090305
  Receipt Date: 20090305
  Transmission Date: 20090719
  Serious: No
  Sender: FDA-Public Use
  Company Number: None

PATIENT
  Age: 85 Year
  Sex: Female
  Weight: 59.8748 kg

DRUGS (2)
  1. TEMAZEPAM [Suspect]
     Indication: INSOMNIA
     Dates: start: 20080801, end: 20090210
  2. ZOLPIDEM [Suspect]
     Indication: INSOMNIA
     Dates: start: 20090210, end: 20090215

REACTIONS (7)
  - ABDOMINAL DISCOMFORT [None]
  - HALLUCINATION [None]
  - HEAD INJURY [None]
  - HEADACHE [None]
  - SKIN LACERATION [None]
  - SUICIDAL IDEATION [None]
  - SYNCOPE [None]
